FAERS Safety Report 4982794-X (Version None)
Quarter: 2006Q2

REPORT INFORMATION
  Report Type: 
  Country: None (occurrence: None)
  Receive Date: 20060425
  Receipt Date: 20050218
  Transmission Date: 20061013
  Serious: Yes (Hospitalization, Disabling)
  Sender: FDA-Public Use
  Company Number: US-MERCK-0502USA02898

PATIENT
  Age: 48 Year
  Sex: Male
  Weight: 89 kg

DRUGS (14)
  1. VIOXX [Suspect]
     Indication: BACK PAIN
     Route: 048
     Dates: start: 20020101, end: 20040101
  2. VIOXX [Suspect]
     Route: 048
     Dates: start: 20020101, end: 20040101
  3. VIOXX [Suspect]
     Indication: SHOULDER PAIN
     Route: 048
     Dates: start: 20020101, end: 20040101
  4. VIOXX [Suspect]
     Route: 048
     Dates: start: 20020101, end: 20040101
  5. LESCOL [Concomitant]
     Route: 065
  6. METFORMIN [Concomitant]
     Route: 065
  7. GLUCOTROL XL [Concomitant]
     Route: 065
  8. DICLOFENAC [Concomitant]
     Route: 065
  9. CAPTOPRIL [Concomitant]
     Route: 065
  10. PLAVIX [Concomitant]
     Route: 065
  11. METOPROLOL [Concomitant]
     Route: 065
  12. LISINOPRIL [Concomitant]
     Route: 065
  13. ACIPHEX [Concomitant]
     Route: 065
  14. LIPITOR [Concomitant]
     Route: 065

REACTIONS (9)
  - BACK INJURY [None]
  - CORONARY ARTERY DISEASE [None]
  - GASTROOESOPHAGEAL REFLUX DISEASE [None]
  - MYOCARDIAL INFARCTION [None]
  - MYOCARDIAL ISCHAEMIA [None]
  - POLLAKIURIA [None]
  - SINUS BRADYCARDIA [None]
  - SKIN LACERATION [None]
  - VENTRICULAR TACHYCARDIA [None]
